FAERS Safety Report 19159047 (Version 2)
Quarter: 2021Q2

REPORT INFORMATION
  Report Type: Spontaneous
  Country: NL (occurrence: NL)
  Receive Date: 20210420
  Receipt Date: 20210426
  Transmission Date: 20210717
  Serious: Yes (Other)
  Sender: FDA-Public Use
  Company Number: NL-BRISTOL-MYERS SQUIBB COMPANY-BMS-2021-034791

PATIENT
  Age: 47 Year
  Sex: Female
  Weight: 130 kg

DRUGS (3)
  1. COVID?19 VACCINE NOS. [Suspect]
     Active Substance: COVID-19 VACCINE NOS
     Indication: COVID-19 IMMUNISATION
     Dosage: UNK (1 DOSAGEFORM)
     Route: 065
     Dates: start: 20210222
  2. KENACORT?A [Suspect]
     Active Substance: TRIAMCINOLONE ACETONIDE
     Indication: JOINT INJURY
     Dosage: 1 DOSAGE FORM, Q3WK
     Route: 065
     Dates: start: 20210201
  3. ETHINYLESTRADIOL/DESOGESTREL [Concomitant]
     Active Substance: DESOGESTREL\ETHINYL ESTRADIOL
     Indication: PRODUCT USED FOR UNKNOWN INDICATION
     Dosage: 1DD1
     Route: 065
     Dates: start: 2011

REACTIONS (2)
  - Intentional product use issue [Unknown]
  - Deep vein thrombosis [Recovering/Resolving]

NARRATIVE: CASE EVENT DATE: 20210302
